FAERS Safety Report 5340073-5 (Version None)
Quarter: 2007Q2

REPORT INFORMATION
  Report Type: 
  Country: None (occurrence: None)
  Receive Date: 20070525
  Receipt Date: 20070525
  Transmission Date: 20071010
  Serious: Yes (Other)
  Sender: FDA-Public Use
  Company Number: None

PATIENT
  Age: 21 Year
  Sex: Female
  Weight: 110.6 kg

DRUGS (3)
  1. ZOLOFT [Suspect]
     Indication: ATTENTION DEFICIT/HYPERACTIVITY DISORDER
     Dosage: ZOLOFT 100MG(2) TABS DAILY (PO)
     Route: 048
     Dates: start: 20060929, end: 20061114
  2. ZOLOFT [Suspect]
     Indication: BIPOLAR I DISORDER
     Dosage: ZOLOFT 100MG(2) TABS DAILY (PO)
     Route: 048
     Dates: start: 20060929, end: 20061114
  3. ZOLOFT [Suspect]
     Indication: PANIC DISORDER
     Dosage: ZOLOFT 100MG(2) TABS DAILY (PO)
     Route: 048
     Dates: start: 20060929, end: 20061114

REACTIONS (2)
  - DEPRESSIVE SYMPTOM [None]
  - PHARMACEUTICAL PRODUCT COMPLAINT [None]
